FAERS Safety Report 10305680 (Version 1)
Quarter: 2014Q3

REPORT INFORMATION
  Report Type: Spontaneous
  Country: US (occurrence: None)
  Receive Date: 20140711
  Receipt Date: 20140711
  Transmission Date: 20150326
  Serious: Yes (Life-Threatening)
  Sender: FDA-Public Use
  Company Number: None

PATIENT
  Age: 46 Year
  Sex: Female
  Weight: 65.77 kg

DRUGS (2)
  1. PAROXETINE [Suspect]
     Active Substance: PAROXETINE\PAROXETINE HYDROCHLORIDE
     Indication: PANIC ATTACK
     Dosage: 1/2 RABLET EVERY FOR 1   ONCE DAILY TAKEN BY MOUTH
     Dates: start: 20140620, end: 20140710
  2. PAROXETINE [Suspect]
     Active Substance: PAROXETINE\PAROXETINE HYDROCHLORIDE
     Indication: ANXIETY
     Dosage: 1/2 RABLET EVERY FOR 1   ONCE DAILY TAKEN BY MOUTH
     Dates: start: 20140620, end: 20140710

REACTIONS (10)
  - Suicidal ideation [None]
  - Hot flush [None]
  - Crying [None]
  - Depression [None]
  - Nausea [None]
  - Thinking abnormal [None]
  - Abnormal dreams [None]
  - Feeling hot [None]
  - Mental disorder [None]
  - Drug withdrawal syndrome [None]

NARRATIVE: CASE EVENT DATE: 20140620
